FAERS Safety Report 5106995-5 (Version None)
Quarter: 2006Q3

REPORT INFORMATION
  Report Type: 
  Country: None (occurrence: None)
  Receive Date: 20060913
  Receipt Date: 20060824
  Transmission Date: 20061208
  Serious: Yes (Hospitalization, Other)
  Sender: FDA-Public Use
  Company Number: US_0404102182

PATIENT
  Age: 69 Year
  Sex: Female

DRUGS (7)
  1. HUMALOG [Suspect]
     Indication: DIABETES MELLITUS
     Dosage: 70 U, DAILY (1/D), SUBCUTANEOUS
     Route: 058
     Dates: start: 20020101
  2. HUMALOG [Suspect]
     Indication: DIABETES MELLITUS
  3. HUMULIN(HUMAN INSULIN (RDNA ORIGIN) [Suspect]
     Indication: DIABETES MELLITUS
     Dates: start: 19800101
  4. ALPRAZOLAM [Concomitant]
  5. METOPROLOL [Concomitant]
  6. WARFARIN SODIUM [Concomitant]
  7. FLONASE [Concomitant]

REACTIONS (12)
  - ATRIAL FIBRILLATION [None]
  - BLOOD GLUCOSE DECREASED [None]
  - CARDIAC DISORDER [None]
  - CONDITION AGGRAVATED [None]
  - DEPRESSED LEVEL OF CONSCIOUSNESS [None]
  - DRUG INEFFECTIVE [None]
  - EYE HAEMORRHAGE [None]
  - FALL [None]
  - INTERVERTEBRAL DISC DISORDER [None]
  - MYELODYSPLASTIC SYNDROME [None]
  - UTERINE CANCER [None]
  - WEIGHT INCREASED [None]
